FAERS Safety Report 6546154-2 (Version None)
Quarter: 2010Q1

REPORT INFORMATION
  Report Type: 
  Country: None (occurrence: None)
  Receive Date: 20100122
  Receipt Date: 20100111
  Transmission Date: 20100710
  Serious: Yes (Life-Threatening, Hospitalization, Other)
  Sender: FDA-Public Use
  Company Number: GB-RANBAXY-2009RR-24804

PATIENT
  Age: 68 Year
  Sex: Male

DRUGS (11)
  1. AMOXICILLIN AND CLAVULANATE POTASSIUM [Suspect]
     Indication: CHRONIC OBSTRUCTIVE PULMONARY DISEASE
     Dosage: 375 MG, TID
     Route: 048
     Dates: start: 20090402, end: 20090416
  2. ALENDRONIC ACID [Concomitant]
     Route: 065
  3. APS CALCIUM AND ERGOCALCIFEROL [Concomitant]
     Route: 065
  4. ATROVENT [Concomitant]
     Route: 065
  5. BUMETANIDE [Concomitant]
     Route: 065
  6. CODEINE PHOSPHATE [Concomitant]
     Route: 065
  7. FELODIPINE [Concomitant]
     Route: 065
  8. PARACETAMOL [Concomitant]
     Route: 065
  9. PREDNISOLONE [Concomitant]
     Route: 065
  10. ALBUTEROL [Concomitant]
     Route: 065
  11. SERETIDE [Concomitant]
     Route: 065

REACTIONS (4)
  - HEPATITIS ACUTE [None]
  - HEPATITIS CHOLESTATIC [None]
  - JAUNDICE [None]
  - LIVER FUNCTION TEST ABNORMAL [None]
